FAERS Safety Report 5649812-7 (Version None)
Quarter: 2008Q1

REPORT INFORMATION
  Report Type: 
  Country: None (occurrence: None)
  Receive Date: 20080304
  Receipt Date: 20080221
  Transmission Date: 20080703
  Serious: Yes (Other)
  Sender: FDA-Public Use
  Company Number: US-PFIZER INC-2008017534

PATIENT
  Sex: Female
  Weight: 131.5 kg

DRUGS (9)
  1. CHANTIX [Suspect]
     Indication: SMOKING CESSATION THERAPY
  2. GLYBURIDE [Concomitant]
  3. PROZAC [Concomitant]
     Route: 048
  4. WELLBUTRIN [Concomitant]
  5. KLOR-CON [Concomitant]
  6. LIPITOR [Concomitant]
  7. AMITRIPTYLINE HCL [Concomitant]
  8. AMBIEN [Concomitant]
  9. ADVAIR DISKUS 100/50 [Concomitant]

REACTIONS (11)
  - ARTHRALGIA [None]
  - ASTHENIA [None]
  - BLOOD TEST ABNORMAL [None]
  - CEREBROVASCULAR ACCIDENT [None]
  - DYSSTASIA [None]
  - FALL [None]
  - HALLUCINATION, AUDITORY [None]
  - INCORRECT DRUG ADMINISTRATION RATE [None]
  - JOINT SWELLING [None]
  - LOSS OF CONSCIOUSNESS [None]
  - WRIST FRACTURE [None]
